FAERS Safety Report 7273401-4 (Version None)
Quarter: 2011Q1

REPORT INFORMATION
  Report Type: 
  Country: None (occurrence: None)
  Receive Date: 20110203
  Receipt Date: 20100928
  Transmission Date: 20110831
  Serious: No
  Sender: FDA-Public Use
  Company Number: US-ABBOTT-10P-163-0676224-00

PATIENT
  Sex: Female
  Weight: 81.72 kg

DRUGS (4)
  1. SYNTHROID [Suspect]
     Dates: start: 20100701
  2. SYNTHROID [Suspect]
     Dates: start: 20070101, end: 20100501
  3. METHADON HCL TAB [Concomitant]
     Indication: DRUG DEPENDENCE
  4. SYNTHROID [Suspect]
     Indication: THYROID DISORDER
     Dates: start: 20050101, end: 20060101

REACTIONS (8)
  - SWELLING [None]
  - WEIGHT INCREASED [None]
  - DYSPNOEA [None]
  - ALOPECIA [None]
  - DEPRESSION [None]
  - AMENORRHOEA [None]
  - THYROID FUNCTION TEST ABNORMAL [None]
  - FATIGUE [None]
